FAERS Safety Report 25937147 (Version 1)
Quarter: 2025Q4

REPORT INFORMATION
  Report Type: Spontaneous
  Country: EU (occurrence: EU)
  Receive Date: 20251017
  Receipt Date: 20251017
  Transmission Date: 20260118
  Serious: Yes (Other)
  Sender: PFIZER
  Company Number: EU-PFIZER INC-202500203748

PATIENT
  Age: 6 Decade
  Sex: Male

DRUGS (7)
  1. TOFACITINIB CITRATE [Suspect]
     Active Substance: TOFACITINIB CITRATE
     Indication: Psoriasis
     Dosage: 5 MG, 2X/DAY
  2. TOFACITINIB CITRATE [Suspect]
     Active Substance: TOFACITINIB CITRATE
     Indication: Psoriatic arthropathy
     Dosage: FOR SAFETY REASONS, A REDUCED DOSE WAS SELECTED
  3. GUSELKUMAB [Concomitant]
     Active Substance: GUSELKUMAB
     Indication: Psoriasis
     Dosage: EVERY 8 WEEKS
  4. GUSELKUMAB [Concomitant]
     Active Substance: GUSELKUMAB
     Indication: Psoriatic arthropathy
  5. ACYCLOVIR [Concomitant]
     Active Substance: ACYCLOVIR
     Dosage: 800 MG, 2X/DAY ((LATER WITHDRAWN AS NO HERPETIC DISEASE OCCURRED DURING THE INITIAL 3 MONTHS OF TREA
  6. RISANKIZUMAB [Concomitant]
     Active Substance: RISANKIZUMAB
     Indication: Psoriasis
     Dosage: EVERY 12 WEEKS
  7. RISANKIZUMAB [Concomitant]
     Active Substance: RISANKIZUMAB
     Indication: Psoriatic arthropathy

REACTIONS (1)
  - Thrombocytopenia [Unknown]
